FAERS Safety Report 10412478 (Version 1)
Quarter: 2014Q2

REPORT INFORMATION
  Report Type: Spontaneous
  Country: US (occurrence: None)
  Receive Date: 20140604
  Receipt Date: 20140604
  Transmission Date: 20141212
  Serious: Yes (Hospitalization)
  Sender: FDA-Public Use
  Company Number: 163-POMAL-14023264

PATIENT
  Age: 74 Year
  Sex: Male

DRUGS (1)
  1. POMALYST (POMALIDOMIDE) (4 MILLIGRAM, CAPSULES) [Suspect]
     Indication: PLASMA CELL MYELOMA
     Route: 048
     Dates: start: 201401

REACTIONS (6)
  - Chills [None]
  - Oropharyngeal pain [None]
  - Tremor [None]
  - Vomiting [None]
  - Diarrhoea [None]
  - Oedema peripheral [None]
